FAERS Safety Report 5842512-X (Version None)
Quarter: 2008Q3

REPORT INFORMATION
  Report Type: 
  Country: None (occurrence: None)
  Receive Date: 20080812
  Receipt Date: 20080801
  Transmission Date: 20090109
  Serious: Yes (Life-Threatening, Hospitalization, Other)
  Sender: FDA-Public Use
  Company Number: DE-PFIZER INC-2008061033

PATIENT
  Age: 15 Year
  Sex: Female
  Weight: 38 kg

DRUGS (1)
  1. GENOTROPIN [Suspect]
     Indication: HYPOPITUITARISM
     Dosage: DAILY DOSE:1MG-FREQ:DAILY
     Dates: start: 20061222, end: 20080717

REACTIONS (1)
  - GERM CELL CANCER [None]
